FAERS Safety Report 5927439-7 (Version None)
Quarter: 2008Q4

REPORT INFORMATION
  Report Type: 
  Country: None (occurrence: None)
  Receive Date: 20081022
  Receipt Date: 20081022
  Transmission Date: 20090506
  Serious: Yes (Life-Threatening)
  Sender: FDA-Public Use
  Company Number: None

PATIENT
  Sex: Male
  Weight: 78.0187 kg

DRUGS (1)
  1. AVODART [Suspect]
     Indication: PROSTATOMEGALY
     Dosage: 0.5MG DAILY ORAL
     Route: 048
     Dates: start: 20071201, end: 20080718

REACTIONS (4)
  - ANXIETY [None]
  - ASTHENIA [None]
  - HAEMORRHAGE [None]
  - PLATELET COUNT DECREASED [None]
